FAERS Safety Report 4363948-2 (Version None)
Quarter: 2004Q2

REPORT INFORMATION
  Report Type: 
  Country: None (occurrence: None)
  Receive Date: 20040513
  Receipt Date: 20040513
  Transmission Date: 20050107
  Serious: Yes (Other)
  Sender: FDA-Public Use
  Company Number: None

PATIENT
  Age: 30 Year
  Sex: Female

DRUGS (1)
  1. PPD TUBERCULIN SKIN INJECTION [Suspect]
     Dosage: ID LA
     Dates: start: 20040514

REACTIONS (6)
  - DISCOMFORT [None]
  - EXCORIATION [None]
  - INJECTION SITE ERYTHEMA [None]
  - INJECTION SITE REACTION [None]
  - PRURITUS [None]
  - URTICARIA [None]
